FAERS Safety Report 7569742-3 (Version None)
Quarter: 2011Q2

REPORT INFORMATION
  Report Type: 
  Country: None (occurrence: None)
  Receive Date: 20110617
  Receipt Date: 20110606
  Transmission Date: 20111010
  Serious: Yes (Other)
  Sender: FDA-Public Use
  Company Number: DSA_45574_2011

PATIENT
  Age: 92 Year
  Sex: Female

DRUGS (2)
  1. CARDIZEM LA [Suspect]
     Indication: HYPERTENSION
     Dosage: (360 MG QD ORAL)
     Route: 048
     Dates: start: 20090101
  2. HYDROXYUREA [Suspect]
     Indication: PLATELET DISORDER
     Dosage: (1000 MG QD ORAL)
     Route: 048
     Dates: end: 20110401

REACTIONS (2)
  - CHOLELITHIASIS [None]
  - LIVER FUNCTION TEST ABNORMAL [None]
